FAERS Safety Report 10546167 (Version 1)
Quarter: 2014Q4

REPORT INFORMATION
  Report Type: Spontaneous
  Country: US (occurrence: US)
  Receive Date: 20141027
  Receipt Date: 20141027
  Transmission Date: 20150529
  Serious: No
  Sender: FDA-Public Use
  Company Number: US-ABBVIE-14P-163-1228101-00

PATIENT
  Age: 22 Year
  Sex: Female
  Weight: 61.29 kg

DRUGS (2)
  1. LUPRON DEPOT [Suspect]
     Active Substance: LEUPROLIDE ACETATE
     Indication: ENDOMETRIOSIS
     Dates: start: 20140224
  2. NORETHINDRONE ACETATE. [Concomitant]
     Active Substance: NORETHINDRONE ACETATE
     Indication: ENDOMETRIOSIS

REACTIONS (3)
  - Vaginal discharge [Recovering/Resolving]
  - Vulvovaginal pain [Recovering/Resolving]
  - Bacterial vaginosis [Recovering/Resolving]

NARRATIVE: CASE EVENT DATE: 20140409
